FAERS Safety Report 9701561 (Version 1)
Quarter: 2013Q4

REPORT INFORMATION
  Report Type: Spontaneous
  Country: US (occurrence: US)
  Receive Date: 20131121
  Receipt Date: 20131121
  Transmission Date: 20140711
  Serious: Yes (Other)
  Sender: FDA-Public Use
  Company Number: US-SA-2013SA118249

PATIENT
  Age: 25 Year
  Sex: Male

DRUGS (1)
  1. LUMIZYME [Suspect]
     Indication: GLYCOGEN STORAGE DISEASE TYPE II
     Dosage: DOSE : INCREASED FROM 24 VIALS SINCE 2011 TO 28 VIALS IN JUN 2013
     Route: 042
     Dates: start: 2006

REACTIONS (2)
  - Wheelchair user [Unknown]
  - Weight increased [Unknown]
